FAERS Safety Report 4740230-2 (Version None)
Quarter: 2005Q3

REPORT INFORMATION
  Report Type: 
  Country: None (occurrence: None)
  Receive Date: 20050810
  Receipt Date: 20050303
  Transmission Date: 20060218
  Serious: No
  Sender: FDA-Public Use
  Company Number: US-GLAXOSMITHKLINE-A0548249A

PATIENT
  Sex: Female

DRUGS (2)
  1. PAXIL [Suspect]
     Dosage: 20MG TWICE PER DAY
     Route: 048
     Dates: start: 19990101
  2. ECOTRIN [Concomitant]
     Dosage: 81MG PER DAY
     Route: 065

REACTIONS (1)
  - CONTUSION [None]
